FAERS Safety Report 23428854 (Version 1)
Quarter: 2024Q1

REPORT INFORMATION
  Report Type: Spontaneous
  Country: CA (occurrence: CA)
  Receive Date: 20240122
  Receipt Date: 20240122
  Transmission Date: 20240409
  Serious: Yes (Hospitalization, Other)
  Sender: FDA-Public Use
  Company Number: CA-TEVA-VS-3147908

PATIENT
  Age: 3 Decade

DRUGS (2)
  1. QUETIAPINE [Suspect]
     Active Substance: QUETIAPINE
     Indication: Evidence based treatment
     Dosage: 25 100MG AT BEDTIME
     Route: 048
  2. ARIPIPRAZOLE [Suspect]
     Active Substance: ARIPIPRAZOLE
     Indication: Evidence based treatment
     Route: 048

REACTIONS (7)
  - Sedation [Unknown]
  - Drug dependence [Unknown]
  - Apathy [Unknown]
  - Depressed mood [Unknown]
  - Nicotine dependence [Unknown]
  - Libido decreased [Unknown]
  - Substance use disorder [Unknown]
